FAERS Safety Report 9970585 (Version 2)
Quarter: 2014Q2

REPORT INFORMATION
  Report Type: Spontaneous
  Country: US (occurrence: None)
  Receive Date: 20140304
  Receipt Date: 20140414
  Transmission Date: 20141212
  Serious: Yes (Other)
  Sender: FDA-Public Use
  Company Number: 2014-US-002237

PATIENT
  Sex: Female

DRUGS (2)
  1. XYREM [Suspect]
     Indication: NARCOLEPSY
     Route: 048
     Dates: start: 201312, end: 201401
  2. XYREM [Suspect]
     Route: 048
     Dates: start: 201312, end: 201401

REACTIONS (4)
  - Abortion spontaneous [None]
  - Maternal drugs affecting foetus [None]
  - Abortion missed [None]
  - Uterine dilation and curettage [None]
